FAERS Safety Report 6099323-2 (Version None)
Quarter: 2009Q1

REPORT INFORMATION
  Report Type: 
  Country: None (occurrence: None)
  Receive Date: 20090226
  Receipt Date: 20090226
  Transmission Date: 20090719
  Serious: No
  Sender: FDA-Public Use
  Company Number: None

PATIENT
  Age: 57 Year
  Sex: Male

DRUGS (2)
  1. WARFARIN SODIUM [Suspect]
     Indication: CEREBROVASCULAR ACCIDENT PROPHYLAXIS
     Dosage: MG EVERY DAY PO
     Route: 048
     Dates: start: 20090129, end: 20090224
  2. CEFIXIME CHEWABLE [Suspect]
     Dosage: MG PO
     Route: 048
     Dates: start: 20090218, end: 20090224

REACTIONS (12)
  - BRAIN NATRIURETIC PEPTIDE INCREASED [None]
  - CARDIAC FAILURE CONGESTIVE [None]
  - DIARRHOEA [None]
  - EPISTAXIS [None]
  - FAECES DISCOLOURED [None]
  - GASTROENTERITIS [None]
  - HAEMATEMESIS [None]
  - HAEMOPTYSIS [None]
  - HAEMORRHAGE [None]
  - HYPOPHAGIA [None]
  - INTERNATIONAL NORMALISED RATIO INCREASED [None]
  - THIRST [None]
